FAERS Safety Report 14444823 (Version 2)
Quarter: 2018Q1

REPORT INFORMATION
  Report Type: Spontaneous
  Country: HU (occurrence: HU)
  Receive Date: 20180126
  Receipt Date: 20180222
  Transmission Date: 20180509
  Serious: Yes (Hospitalization)
  Sender: FDA-Public Use
  Company Number: PHHY2018HU008753

PATIENT
  Age: 13 Year
  Sex: Male

DRUGS (3)
  1. DAPSONE. [Suspect]
     Active Substance: DAPSONE
     Indication: PITYRIASIS LICHENOIDES ET VARIOLIFORMIS ACUTA
     Dosage: 50 MG, QD
     Route: 065
  2. AMOXICILLIN. [Suspect]
     Active Substance: AMOXICILLIN
     Indication: PITYRIASIS LICHENOIDES ET VARIOLIFORMIS ACUTA
     Route: 065
  3. AZITHROMYCIN ANHYDROUS. [Suspect]
     Active Substance: AZITHROMYCIN ANHYDROUS
     Indication: PITYRIASIS LICHENOIDES ET VARIOLIFORMIS ACUTA
     Route: 065

REACTIONS (3)
  - Staphylococcal skin infection [Unknown]
  - Condition aggravated [Recovering/Resolving]
  - Pityriasis lichenoides et varioliformis acuta [Recovering/Resolving]

NARRATIVE: CASE EVENT DATE: 2015
